APPROVED DRUG PRODUCT: LISINOPRIL
Active Ingredient: LISINOPRIL
Strength: 2.5MG
Dosage Form/Route: TABLET;ORAL
Application: A075944 | Product #001 | TE Code: AB
Applicant: SUN PHARMACEUTICAL INDUSTRIES LTD
Approved: Jul 1, 2002 | RLD: No | RS: No | Type: RX